FAERS Safety Report 7860277-7 (Version None)
Quarter: 2011Q4

REPORT INFORMATION
  Report Type: 
  Country: None (occurrence: None)
  Receive Date: 20111027
  Receipt Date: 20111020
  Transmission Date: 20120403
  Serious: Yes (Hospitalization)
  Sender: FDA-Public Use
  Company Number: JP-AMGEN-JPNCT2011003489

PATIENT
  Age: 70 Year
  Sex: Female
  Weight: 48 kg

DRUGS (17)
  1. PANITUMUMAB [Suspect]
     Dosage: 4 MG/KG, Q2WK
     Route: 041
     Dates: start: 20110119, end: 20110309
  2. PANITUMUMAB [Suspect]
     Dosage: 4 MG/KG, Q2WK
     Route: 041
     Dates: start: 20110608, end: 20110622
  3. LOXOMARIN [Concomitant]
     Dosage: UNK
     Route: 048
  4. GOODMIN [Concomitant]
     Dosage: UNK
     Route: 048
  5. PANITUMUMAB [Suspect]
     Indication: COLORECTAL CANCER
     Dosage: 6 MG/KG, Q2WK
     Route: 041
     Dates: start: 20100929, end: 20101201
  6. LEVOLEUCOVORIN CALCIUM [Suspect]
     Indication: COLORECTAL CANCER
     Dosage: 200 MG/M2, Q2WK
     Route: 041
     Dates: start: 20100929
  7. ORGADRONE [Concomitant]
     Dosage: UNK
     Route: 042
  8. PROTECADIN [Concomitant]
     Dosage: UNK
     Route: 048
  9. IRINOTECAN HCL [Suspect]
     Indication: COLORECTAL CANCER
     Dosage: 150 MG/M2, Q2WK
     Route: 041
     Dates: start: 20100929
  10. PANITUMUMAB [Suspect]
     Dosage: 4 MG/KG, Q2WK
     Route: 041
     Dates: start: 20110413, end: 20110413
  11. PANITUMUMAB [Suspect]
     Dosage: 4 MG/KG, Q2WK
     Route: 041
     Dates: start: 20110511, end: 20110511
  12. FLUOROURACIL [Suspect]
     Indication: COLORECTAL CANCER
     Dosage: 400 MG/M2, Q2WK
     Route: 040
     Dates: start: 20100929
  13. JUZENTAIHOTO [Concomitant]
     Dosage: UNK
     Route: 048
  14. DEPAS [Concomitant]
     Dosage: UNK
     Route: 048
  15. FLUOROURACIL [Suspect]
     Dosage: 2400 MG/M2, Q2WK
     Route: 041
     Dates: start: 20100929
  16. ALOXI [Concomitant]
     Dosage: UNK
     Route: 042
  17. PANITUMUMAB [Suspect]
     Dosage: 4 MG/KG, Q2WK
     Route: 041
     Dates: start: 20110727

REACTIONS (4)
  - DERMATITIS ACNEIFORM [None]
  - DECREASED APPETITE [None]
  - DEHYDRATION [None]
  - STOMATITIS [None]
